FAERS Safety Report 5826749-1 (Version None)
Quarter: 2008Q3

REPORT INFORMATION
  Report Type: 
  Country: None (occurrence: None)
  Receive Date: 20080728
  Receipt Date: 20080728
  Transmission Date: 20090109
  Serious: Yes (Other)
  Sender: FDA-Public Use
  Company Number: None

PATIENT
  Age: 52 Year
  Sex: Female
  Weight: 54.8852 kg

DRUGS (1)
  1. LIPITOR [Suspect]
     Indication: BLOOD CHOLESTEROL INCREASED
     Dosage: 5 MG ONCE PER DAY PO
     Route: 048
     Dates: start: 20080301, end: 20080530

REACTIONS (16)
  - ASTHENIA [None]
  - BACK PAIN [None]
  - BREATH ODOUR [None]
  - CHROMATURIA [None]
  - EYELID DISORDER [None]
  - FLUID RETENTION [None]
  - HEADACHE [None]
  - INFLUENZA LIKE ILLNESS [None]
  - MALAISE [None]
  - NAUSEA [None]
  - OCULAR HYPERAEMIA [None]
  - PAIN [None]
  - PAIN IN EXTREMITY [None]
  - RASH MACULAR [None]
  - URINE OUTPUT DECREASED [None]
  - WEIGHT INCREASED [None]
